FAERS Safety Report 24410648 (Version 1)
Quarter: 2024Q4

REPORT INFORMATION
  Report Type: Spontaneous
  Country: US (occurrence: US)
  Receive Date: 20241008
  Receipt Date: 20241008
  Transmission Date: 20250114
  Serious: No
  Sender: AUROBINDO
  Company Number: US-AUROBINDO-AUR-APL-2024-010663

PATIENT
  Sex: Male

DRUGS (1)
  1. ALFUZOSIN HYDROCHLORIDE EXTENDED RELEASE [Suspect]
     Active Substance: ALFUZOSIN HYDROCHLORIDE
     Indication: Product used for unknown indication
     Dosage: 10 MILLIGRAM, 3 TO 4 TIMES A DAY
     Route: 065

REACTIONS (3)
  - Prostatic specific antigen increased [Unknown]
  - Middle insomnia [Unknown]
  - Drug ineffective [Unknown]
